FAERS Safety Report 5138378-6 (Version None)
Quarter: 2006Q4

REPORT INFORMATION
  Report Type: 
  Country: None (occurrence: None)
  Receive Date: 20061024
  Receipt Date: 20061013
  Transmission Date: 20070319
  Serious: Yes (Other)
  Sender: FDA-Public Use
  Company Number: 2006106497

PATIENT
  Age: 44 Year
  Sex: Female
  Weight: 79.3795 kg

DRUGS (3)
  1. BENGAY (MENTHOL) [Suspect]
     Indication: ACCIDENTAL EXPOSURE
     Dosage: VAINGAL
     Route: 067
     Dates: start: 20060831, end: 20060831
  2. FEXOFENADINE HYDROCHLORIDE [Concomitant]
  3. BUDESONIDE [Concomitant]

REACTIONS (10)
  - ACCIDENTAL EXPOSURE [None]
  - DYSMENORRHOEA [None]
  - INCORRECT ROUTE OF DRUG ADMINISTRATION [None]
  - MEDICATION ERROR [None]
  - MENORRHAGIA [None]
  - NAUSEA [None]
  - PAIN [None]
  - THERMAL BURN [None]
  - VAGINAL BURNING SENSATION [None]
  - VULVOVAGINAL DRYNESS [None]
